FAERS Safety Report 8567253-X (Version None)
Quarter: 2012Q3

REPORT INFORMATION
  Report Type: 
  Country: None (occurrence: None)
  Receive Date: 20120803
  Receipt Date: 20110912
  Transmission Date: 20120928
  Serious: No
  Sender: FDA-Public Use
  Company Number: US-ABBOTT-11P-163-0854420-00

PATIENT
  Sex: Male
  Weight: 86.26 kg

DRUGS (1)
  1. NIASPAN [Suspect]
     Indication: BLOOD CHOLESTEROL
     Dosage: 500 MG
     Dates: start: 20110906, end: 20110910

REACTIONS (2)
  - PRURITUS [None]
  - RASH [None]
